FAERS Safety Report 17527054 (Version 3)
Quarter: 2020Q2

REPORT INFORMATION
  Report Type: Spontaneous
  Country: US (occurrence: US)
  Receive Date: 20200311
  Receipt Date: 20200519
  Transmission Date: 20200713
  Serious: No
  Sender: FDA-Public Use
  Company Number: US-PFIZER INC-2019328465

PATIENT
  Age: 31 Year
  Sex: Female

DRUGS (3)
  1. ARTHROTEC [Suspect]
     Active Substance: DICLOFENAC SODIUM\MISOPROSTOL
     Indication: BACK PAIN
  2. ARTHROTEC [Suspect]
     Active Substance: DICLOFENAC SODIUM\MISOPROSTOL
     Indication: ARTHRALGIA
     Dosage: UNK, 3X/DAY (75 MG/0.2 MG, THREE TIMES DAILY)
     Route: 048
  3. ARTHROTEC [Suspect]
     Active Substance: DICLOFENAC SODIUM\MISOPROSTOL
     Indication: SPINAL OSTEOARTHRITIS
     Dosage: UNK, 2X/DAY (75 MG/0.2 MG, TWICE DAILY)
     Route: 048

REACTIONS (1)
  - Drug ineffective [Unknown]
